FAERS Safety Report 6468895-8 (Version None)
Quarter: 2009Q4

REPORT INFORMATION
  Report Type: 
  Country: None (occurrence: None)
  Receive Date: 20091203
  Receipt Date: 20080723
  Transmission Date: 20100525
  Serious: Yes (Hospitalization)
  Sender: FDA-Public Use
  Company Number: JP-ELI_LILLY_AND_COMPANY-JP200611000005

PATIENT
  Sex: Female
  Weight: 76.8 kg

DRUGS (7)
  1. HUMACART REGULAR [Suspect]
     Indication: TYPE 2 DIABETES MELLITUS
     Dosage: 6 U, DAILY (1/D)
     Route: 042
     Dates: start: 20060120, end: 20060123
  2. HUMACART REGULAR [Suspect]
     Dosage: 8 U, DAILY (1/D)
     Route: 058
     Dates: start: 20060121, end: 20060129
  3. HUMACART REGULAR [Suspect]
     Dosage: 20 U, DAILY (1/D)
     Route: 042
     Dates: start: 20060124, end: 20060126
  4. HUMACART REGULAR [Suspect]
     Dosage: 30 U, DAILY (1/D)
     Route: 042
     Dates: start: 20060127, end: 20060130
  5. HUMACART REGULAR [Suspect]
     Dosage: 2 U, DAILY (1/D)
     Route: 042
     Dates: start: 20060131, end: 20060204
  6. AMINOLEBAN [Concomitant]
     Indication: HEPATIC ENCEPHALOPATHY
     Dosage: 500 ML, 2/D
     Route: 042
     Dates: start: 20060102, end: 20060210
  7. LACTULOSE [Concomitant]
     Indication: HEPATIC ENCEPHALOPATHY
     Dosage: 90 ML, DAILY (1/D)
     Route: 048
     Dates: start: 20060105

REACTIONS (1)
  - HYPOPHOSPHATAEMIA [None]
